FAERS Safety Report 4485035-5 (Version None)
Quarter: 2004Q4

REPORT INFORMATION
  Report Type: 
  Country: None (occurrence: None)
  Receive Date: 20041022
  Receipt Date: 20041022
  Transmission Date: 20050328
  Serious: Yes (Hospitalization)
  Sender: FDA-Public Use
  Company Number: None

PATIENT
  Age: 72 Year
  Sex: Male
  Weight: 101.2 kg

DRUGS (12)
  1. QUETIAPINE FUMARATE [Suspect]
     Indication: SCHIZOPHRENIA
     Dosage: 300MG, 100MG AM ORAL
     Route: 048
     Dates: start: 20031120, end: 20031207
  2. QUETIAPINE FUMARATE [Concomitant]
  3. METFORMIN HCL [Concomitant]
  4. PROPRANOLOL HCL [Concomitant]
  5. NAPROXEN [Concomitant]
  6. GEMFIBROZIL [Concomitant]
  7. HYDROCHLOROTHIAZIDE [Concomitant]
  8. PAROXENTINE HCL [Concomitant]
  9. GLIPIZIDE [Concomitant]
  10. ROSIGLITAZONE MALEATE [Concomitant]
  11. LISINOPRIL [Concomitant]
  12. SILDENAFIL CITRATE [Concomitant]

REACTIONS (1)
  - GRAND MAL CONVULSION [None]
